FAERS Safety Report 4436848-7 (Version None)
Quarter: 2004Q3

REPORT INFORMATION
  Report Type: 
  Country: None (occurrence: None)
  Receive Date: 20040830
  Receipt Date: 20040630
  Transmission Date: 20050211
  Serious: Yes (Hospitalization)
  Sender: FDA-Public Use
  Company Number: DE-ROCHE-372565

PATIENT
  Age: 65 Year
  Sex: Female
  Weight: 75 kg

DRUGS (1)
  1. ROCEPHIN [Suspect]
     Indication: NEUROBORRELIOSIS
     Route: 042
     Dates: start: 20040603, end: 20040603

REACTIONS (4)
  - DIALYSIS [None]
  - HAEMOLYTIC ANAEMIA [None]
  - RENAL FAILURE ACUTE [None]
  - SHOCK [None]
